FAERS Safety Report 11235140 (Version 1)
Quarter: 2015Q3

REPORT INFORMATION
  Report Type: Spontaneous
  Country: BE (occurrence: BE)
  Receive Date: 20150702
  Receipt Date: 20150702
  Transmission Date: 20151125
  Serious: Yes (Hospitalization, Other)
  Sender: FDA-Public Use
  Company Number: PHHY2015BE076541

PATIENT
  Age: 51 Year
  Sex: Female

DRUGS (1)
  1. METHADONE [Suspect]
     Active Substance: METHADONE HYDROCHLORIDE
     Indication: PRODUCT USED FOR UNKNOWN INDICATION
     Dosage: 400 MG, UNK
     Route: 065

REACTIONS (8)
  - Acute coronary syndrome [Recovered/Resolved]
  - Hypoxia [Recovered/Resolved]
  - Loss of consciousness [Recovered/Resolved]
  - Overdose [Recovered/Resolved]
  - Hypoventilation [Recovered/Resolved]
  - Bradypnoea [Recovered/Resolved]
  - Drug administration error [Recovered/Resolved]
  - Miosis [Recovered/Resolved]
